FAERS Safety Report 6929971-6 (Version None)
Quarter: 2010Q3

REPORT INFORMATION
  Report Type: 
  Country: None (occurrence: None)
  Receive Date: 20100817
  Receipt Date: 20100817
  Transmission Date: 20110219
  Serious: Yes (Life-Threatening, Hospitalization)
  Sender: FDA-Public Use
  Company Number: None

PATIENT
  Sex: Female
  Weight: 58.9676 kg

DRUGS (1)
  1. LIPITOR [Suspect]

REACTIONS (7)
  - CHILLS [None]
  - DECREASED APPETITE [None]
  - MEMORY IMPAIRMENT [None]
  - SOMNOLENCE [None]
  - TONGUE DISCOLOURATION [None]
  - UNEVALUABLE EVENT [None]
  - WEIGHT DECREASED [None]
